FAERS Safety Report 4573498-6 (Version None)
Quarter: 2005Q1

REPORT INFORMATION
  Report Type: 
  Country: None (occurrence: None)
  Receive Date: 20050208
  Receipt Date: 20040831
  Transmission Date: 20050727
  Serious: No
  Sender: FDA-Public Use
  Company Number: US-GLAXOSMITHKLINE-A0524077A

PATIENT
  Age: 83 Year
  Sex: Female

DRUGS (6)
  1. PAXIL [Suspect]
     Indication: DEPRESSION
     Route: 048
  2. ACTOS [Concomitant]
  3. METHOTREXATE [Concomitant]
  4. FOLGARD [Concomitant]
  5. FOSAMAX [Concomitant]
  6. VITAMIN E [Concomitant]

REACTIONS (2)
  - AMNESIA [None]
  - CONFUSIONAL STATE [None]
